FAERS Safety Report 5412640-1 (Version None)
Quarter: 2007Q3

REPORT INFORMATION
  Report Type: 
  Country: None (occurrence: None)
  Receive Date: 20070813
  Receipt Date: 20070807
  Transmission Date: 20080115
  Serious: Yes (Life-Threatening)
  Sender: FDA-Public Use
  Company Number: JP-ASTRAZENECA-2007AP04776

PATIENT
  Age: 58 Year
  Sex: Male

DRUGS (4)
  1. XYLOCAINE VISCOUS [Suspect]
     Indication: LOCAL ANAESTHESIA
     Route: 049
     Dates: start: 20070727, end: 20070727
  2. XYLOCAINE [Suspect]
     Indication: LOCAL ANAESTHESIA
     Route: 049
     Dates: start: 20070727, end: 20070727
  3. HORIZON [Suspect]
     Indication: EPILEPSY
     Dates: start: 20070727, end: 20070727
  4. CERCINE [Suspect]
     Indication: EPILEPSY
     Dates: start: 20070727, end: 20070727

REACTIONS (3)
  - BLOOD PRESSURE DECREASED [None]
  - EPILEPSY [None]
  - SOMNOLENCE [None]
